FAERS Safety Report 8557496 (Version 2)
Quarter: 2012Q4

REPORT INFORMATION
  Report Type: 
  Country: US (occurrence: US)
  Receive Date: 20120511
  Receipt Date: 20120920
  Transmission Date: 20130627
  Serious: Yes (Other)
  Sender: FDA-Public Use
  Company Number: US-ENDO PHARMACEUTICALS INC.-OPCR20120562

PATIENT
  Age: 30 None
  Sex: Male
  Weight: 68.1 kg

DRUGS (2)
  1. OPANA ER 40MG [Suspect]
     Indication: PAIN
     Route: 048
     Dates: start: 20120427
  2. OPANA ER [Concomitant]
     Indication: PAIN
     Dosage: UNKNOWN
     Route: 048

REACTIONS (7)
  - Inappropriate schedule of drug administration [Unknown]
  - Tremor [Unknown]
  - Feeling cold [Unknown]
  - Drug ineffective [Unknown]
  - Drug effect decreased [Not Recovered/Not Resolved]
  - Device issue [None]
  - Product quality issue [None]
